FAERS Safety Report 19770133 (Version 1)
Quarter: 2021Q3

REPORT INFORMATION
  Report Type: Spontaneous
  Country: US (occurrence: US)
  Receive Date: 20210830
  Receipt Date: 20210830
  Transmission Date: 20211014
  Serious: Yes (Hospitalization)
  Sender: FDA-Public Use
  Company Number: None

PATIENT
  Age: 73 Year
  Sex: Female

DRUGS (9)
  1. FABRAZYME [Suspect]
     Active Substance: AGALSIDASE BETA
     Indication: FABRY^S DISEASE
     Route: 042
     Dates: start: 20210310
  2. EPINEPHRINE. [Concomitant]
     Active Substance: EPINEPHRINE
  3. SOTALOL HCL [Concomitant]
     Active Substance: SOTALOL
  4. PRAVASTATIN. [Concomitant]
     Active Substance: PRAVASTATIN
  5. FLUCONAZOLE. [Concomitant]
     Active Substance: FLUCONAZOLE
  6. METHYLPRED [Concomitant]
     Active Substance: METHYLPREDNISOLONE
  7. OMEPRAZOLE. [Concomitant]
     Active Substance: OMEPRAZOLE
  8. PREDNISONE. [Concomitant]
     Active Substance: PREDNISONE
  9. HYD POL/CPM [Concomitant]

REACTIONS (2)
  - Therapy interrupted [None]
  - Dehydration [None]

NARRATIVE: CASE EVENT DATE: 20210824
